FAERS Safety Report 15597579 (Version 1)
Quarter: 2018Q4

REPORT INFORMATION
  Report Type: Spontaneous
  Country: US (occurrence: US)
  Receive Date: 20181108
  Receipt Date: 20181108
  Transmission Date: 20190205
  Serious: Yes (Hospitalization, Other)
  Sender: FDA-Public Use
  Company Number: US-GLENMARK PHARMACEUTICALS-2018GMK037949

PATIENT
  Age: 50 Year
  Sex: Female

DRUGS (8)
  1. PROMETHAZINE [Suspect]
     Active Substance: PROMETHAZINE\PROMETHAZINE HYDROCHLORIDE
     Indication: NAUSEA
     Dosage: 25 MG  IN TOTAL
     Route: 042
  2. PROMETHAZINE [Suspect]
     Active Substance: PROMETHAZINE\PROMETHAZINE HYDROCHLORIDE
     Indication: VOMITING
  3. TRAMADOL. [Suspect]
     Active Substance: TRAMADOL
     Indication: PAIN
     Dosage: 50 MG, PRN
     Route: 048
  4. PROMETHAZINE [Suspect]
     Active Substance: PROMETHAZINE\PROMETHAZINE HYDROCHLORIDE
     Indication: NAUSEA
     Dosage: 12.5-25 MG ORAL AT HOME AS NEEDED FOR MILD NAUSEA
     Route: 048
  5. ONDANSETRON [Suspect]
     Active Substance: ONDANSETRON
     Indication: VOMITING
  6. ONDANSETRON [Suspect]
     Active Substance: ONDANSETRON
     Indication: NAUSEA
     Dosage: 4 MG, UNK (TOTAL 16 MG DOSE GIVEN)
     Route: 065
  7. DULOXETINE. [Suspect]
     Active Substance: DULOXETINE
     Indication: NEUROPATHY PERIPHERAL
     Dosage: 30 MG, BID
     Route: 048
  8. PROMETHAZINE [Suspect]
     Active Substance: PROMETHAZINE\PROMETHAZINE HYDROCHLORIDE
     Dosage: 12.5-25 MG ORAL AT HOME AS NEEDED FOR MILD NAUSEA ; AS NECESSARY
     Route: 048

REACTIONS (4)
  - Pain [Recovered/Resolved]
  - Condition aggravated [Recovered/Resolved]
  - Serotonin syndrome [Recovered/Resolved]
  - Drug ineffective for unapproved indication [Unknown]
